FAERS Safety Report 7106186-2 (Version None)
Quarter: 2010Q4

REPORT INFORMATION
  Report Type: 
  Country: None (occurrence: None)
  Receive Date: 20101116
  Receipt Date: 20100528
  Transmission Date: 20110411
  Serious: Yes (Hospitalization)
  Sender: FDA-Public Use
  Company Number: DE-BAYER-201019803GPV

PATIENT
  Age: 36 Year
  Sex: Female
  Weight: 58 kg

DRUGS (1)
  1. CIPROFLOXACIN HCL [Suspect]
     Indication: LUNG INFECTION
     Route: 048
     Dates: start: 20100225, end: 20100303

REACTIONS (8)
  - ACTIVATED PARTIAL THROMBOPLASTIN TIME PROLONGED [None]
  - HAEMATOMA [None]
  - HAEMATURIA [None]
  - MALABSORPTION [None]
  - MASS [None]
  - PROTHROMBIN LEVEL DECREASED [None]
  - PROTHROMBIN TIME PROLONGED [None]
  - VITAMIN K DEFICIENCY [None]
